FAERS Safety Report 11153230 (Version 1)
Quarter: 2015Q2

REPORT INFORMATION
  Report Type: Report from Study
  Country: BE (occurrence: BE)
  Receive Date: 20150601
  Receipt Date: 20150601
  Transmission Date: 20150821
  Serious: Yes (Death)
  Sender: FDA-Public Use
  Company Number: PHHY2015BE065301

PATIENT

DRUGS (1)
  1. CGP 57148B [Suspect]
     Active Substance: IMATINIB MESYLATE
     Indication: SYSTEMIC MASTOCYTOSIS
     Dosage: 100 MG, QD
     Route: 065
     Dates: start: 201306

REACTIONS (1)
  - Death [Fatal]
